FAERS Safety Report 9414418 (Version 1)
Quarter: 2013Q3

REPORT INFORMATION
  Report Type: Report from Study
  Country: JP (occurrence: JP)
  Receive Date: 20130723
  Receipt Date: 20130723
  Transmission Date: 20140515
  Serious: Yes (Disabling)
  Sender: FDA-Public Use
  Company Number: JP-GLAXOSMITHKLINE-B0591552A

PATIENT
  Age: 53 Year
  Sex: Male
  Weight: 60 kg

DRUGS (15)
  1. ARRANON [Suspect]
     Indication: T-CELL TYPE ACUTE LEUKAEMIA
     Dosage: 1500MG PER DAY
     Dates: start: 20090406, end: 20090410
  2. CYLOCIDE [Concomitant]
     Indication: NEOPLASM MALIGNANT
     Route: 065
     Dates: start: 20090309, end: 20090311
  3. FLUDARABINE PHOSPHATE [Concomitant]
     Route: 065
  4. ALKERAN [Concomitant]
     Route: 065
  5. CARMUSTINE [Concomitant]
     Route: 065
  6. LASTET [Concomitant]
     Indication: NEOPLASM MALIGNANT
     Route: 042
     Dates: start: 20090309, end: 20090311
  7. GRANISETRON HYDROCHLORIDE [Concomitant]
     Indication: PROPHYLAXIS OF NAUSEA AND VOMITING
     Dates: start: 20090406, end: 20090410
  8. PREDONINE [Concomitant]
     Indication: PROPHYLAXIS OF NAUSEA AND VOMITING
     Dates: start: 20090406, end: 20090410
  9. GASTER D [Concomitant]
     Indication: PROPHYLAXIS AGAINST GASTROINTESTINAL ULCER
     Route: 048
     Dates: start: 20090306, end: 20090430
  10. MUCOSTA [Concomitant]
     Indication: PROPHYLAXIS AGAINST GASTROINTESTINAL ULCER
     Route: 048
     Dates: start: 20090306, end: 20090430
  11. CRAVIT [Concomitant]
     Indication: INFECTION PROPHYLAXIS
     Route: 048
     Dates: start: 20090306, end: 20090430
  12. ZOVIRAX [Concomitant]
     Indication: INFECTION PROPHYLAXIS
     Route: 048
     Dates: start: 20090306, end: 20090430
  13. ISCOTIN [Concomitant]
     Indication: INFECTION PROPHYLAXIS
     Route: 048
     Dates: start: 20090306, end: 20090430
  14. BAKTAR [Concomitant]
     Indication: INFECTION PROPHYLAXIS
     Route: 065
     Dates: start: 20090306, end: 20090430
  15. UNKNOWN DRUG [Concomitant]
     Indication: INFECTION PROPHYLAXIS
     Route: 048
     Dates: start: 20090411, end: 20090422

REACTIONS (3)
  - Asthenia [Not Recovered/Not Resolved]
  - Sensory loss [Not Recovered/Not Resolved]
  - Diplegia [Unknown]
